FAERS Safety Report 5621499-9 (Version None)
Quarter: 2008Q1

REPORT INFORMATION
  Report Type: 
  Country: None (occurrence: None)
  Receive Date: 20080211
  Receipt Date: 20071029
  Transmission Date: 20080703
  Serious: No
  Sender: FDA-Public Use
  Company Number: US-BAYER-US-2007-041025

PATIENT
  Age: 44 Year
  Sex: Female
  Weight: 66 kg

DRUGS (1)
  1. MIRENA [Suspect]
     Indication: MENOMETRORRHAGIA
     Route: 015
     Dates: start: 20070307

REACTIONS (1)
  - RASH [None]
